FAERS Safety Report 13503306 (Version 1)
Quarter: 2017Q2

REPORT INFORMATION
  Report Type: Spontaneous
  Country: US (occurrence: US)
  Receive Date: 20170502
  Receipt Date: 20170502
  Transmission Date: 20170830
  Serious: Yes (Disabling)
  Sender: FDA-Public Use
  Company Number: None

PATIENT
  Age: 42 Year
  Sex: Female
  Weight: 108 kg

DRUGS (12)
  1. D2 [Concomitant]
  2. CPAP [Concomitant]
     Active Substance: DEVICE
  3. METRPOLOL [Concomitant]
  4. MANESIUM [Concomitant]
  5. ITAMI [Concomitant]
  6. VITAMIN D3 [Concomitant]
     Active Substance: CHOLECALCIFEROL
  7. ARMOUT THYROID [Concomitant]
  8. CLONADINE [Concomitant]
  9. PERCOCET [Concomitant]
     Active Substance: ACETAMINOPHEN\OXYCODONE HYDROCHLORIDE
  10. CLONAZAPAM [Concomitant]
     Active Substance: CLONAZEPAM
  11. LEVOFLOXIN [Suspect]
     Active Substance: LEVOFLOXACIN
     Indication: URINARY TRACT INFECTION
     Dosage: ?          QUANTITY:14 TABLET(S);?
     Route: 048
     Dates: start: 20170421, end: 20170422
  12. CALCITROL [Concomitant]
     Active Substance: CALCITRIOL

REACTIONS (3)
  - Arthralgia [None]
  - Movement disorder [None]
  - Fungal infection [None]

NARRATIVE: CASE EVENT DATE: 20170421
